FAERS Safety Report 22633588 (Version 1)
Quarter: 2023Q2

REPORT INFORMATION
  Report Type: Spontaneous
  Country: DE (occurrence: DE)
  Receive Date: 20230623
  Receipt Date: 20230623
  Transmission Date: 20230722
  Serious: Yes (Death, Life-Threatening, Other)
  Sender: FDA-Public Use
  Company Number: None

PATIENT
  Age: 74 Year
  Sex: Male
  Weight: 95 kg

DRUGS (3)
  1. RITUXIMAB [Suspect]
     Active Substance: RITUXIMAB
     Indication: Mantle cell lymphoma stage I
     Route: 065
     Dates: start: 20210129
  2. RITUXIMAB [Suspect]
     Active Substance: RITUXIMAB
     Indication: B-cell lymphoma
     Route: 065
     Dates: end: 202003
  3. RITUXIMAB [Suspect]
     Active Substance: RITUXIMAB
     Indication: Mantle cell lymphoma
     Route: 041
     Dates: end: 202003

REACTIONS (3)
  - Hepatitis B reactivation [Not Recovered/Not Resolved]
  - Hepatorenal syndrome [Not Recovered/Not Resolved]
  - Urosepsis [Fatal]
